FAERS Safety Report 12814967 (Version 1)
Quarter: 2016Q4

REPORT INFORMATION
  Report Type: Report from Study
  Country: US (occurrence: US)
  Receive Date: 20161005
  Receipt Date: 20161005
  Transmission Date: 20170207
  Serious: Yes (Hospitalization, Other)
  Sender: FDA-Public Use
  Company Number: US-SAOL THERAPEUTICS-2016SAO00750

PATIENT
  Age: 64 Year
  Sex: Female

DRUGS (13)
  1. COMPOUNDED BACLOFEN [Suspect]
     Active Substance: BACLOFEN
     Dosage: 69.96 ?G, \DAY
     Route: 037
     Dates: start: 20151014, end: 20151020
  2. COMPOUNDED BACLOFEN [Suspect]
     Active Substance: BACLOFEN
     Indication: MUSCLE SPASTICITY
     Dosage: 44.03 ?G, \DAY
     Route: 037
     Dates: start: 20151130, end: 20160204
  3. COMPOUNDED BACLOFEN [Suspect]
     Active Substance: BACLOFEN
     Dosage: 39.99 ?G, \DAY
     Route: 037
     Dates: start: 20151105, end: 20151130
  4. TIZANIDINE. [Suspect]
     Active Substance: TIZANIDINE
     Route: 048
  5. COMPOUNDED BACLOFEN [Suspect]
     Active Substance: BACLOFEN
     Indication: MUSCLE SPASTICITY
     Dosage: 25.09 ?G, \DAY
     Route: 037
     Dates: start: 20160204
  6. COMPOUNDED BACLOFEN [Suspect]
     Active Substance: BACLOFEN
     Indication: MUSCLE SPASTICITY
     Dosage: 199.9 ?G, \DAY
     Route: 037
     Dates: start: 20151007, end: 20151008
  7. FENTANYL. [Suspect]
     Active Substance: FENTANYL
     Dosage: 12.49 ?G, \DAY
     Route: 037
     Dates: start: 20151007, end: 20151008
  8. FENTANYL. [Suspect]
     Active Substance: FENTANYL
     Dosage: 4.366 ?G, \DAY
     Route: 037
     Dates: start: 20151014, end: 20151020
  9. FENTANYL. [Suspect]
     Active Substance: FENTANYL
     Dosage: 10.04 ?G, \DAY
     Route: 037
     Dates: start: 20160204
  10. FENTANYL. [Suspect]
     Active Substance: FENTANYL
     Dosage: 5.87 ?G, \DAY
     Route: 037
     Dates: start: 20151130
  11. FENTANYL. [Suspect]
     Active Substance: FENTANYL
     Dosage: 5.33 ?G, \DAY
     Route: 037
     Dates: start: 20151105, end: 20151130
  12. TRAMADOL. [Suspect]
     Active Substance: TRAMADOL
     Dosage: UNK
     Route: 048
  13. GABAPENTIN. [Suspect]
     Active Substance: GABAPENTIN
     Route: 048

REACTIONS (5)
  - Asthenia [Recovered/Resolved]
  - Post procedural complication [Recovered/Resolved]
  - Limb discomfort [Recovered/Resolved]
  - Adverse drug reaction [Recovered/Resolved]
  - Muscular weakness [Recovered/Resolved]

NARRATIVE: CASE EVENT DATE: 20151007
